FAERS Safety Report 8093204-0 (Version None)
Quarter: 2012Q1

REPORT INFORMATION
  Report Type: 
  Country: None (occurrence: None)
  Receive Date: 20120128
  Receipt Date: 20111020
  Transmission Date: 20120608
  Serious: No
  Sender: FDA-Public Use
  Company Number: US-ABBOTT-11P-163-0716644-00

PATIENT
  Sex: Female
  Weight: 65.83 kg

DRUGS (8)
  1. CLONAZEPAM [Concomitant]
     Indication: INSOMNIA
     Dosage: AT BEDTIME
     Route: 048
  2. CLONAZEPAM [Concomitant]
     Indication: ANXIETY
  3. FUROSEMIDE [Concomitant]
     Indication: HYPERTENSION
     Route: 048
  4. ASPIRIN [Concomitant]
     Indication: PRODUCT USED FOR UNKNOWN INDICATION
  5. ATENOLOL [Concomitant]
     Indication: HYPERTENSION
     Route: 048
  6. RANEXA [Concomitant]
     Indication: ANGINA PECTORIS
     Route: 048
  7. HUMIRA [Suspect]
     Indication: PSORIASIS
     Route: 058
     Dates: start: 20110314
  8. LYRICA [Concomitant]
     Indication: FIBROMYALGIA
     Route: 048

REACTIONS (9)
  - VAGINITIS BACTERIAL [None]
  - VAGINAL DISCHARGE [None]
  - VULVOVAGINAL DISCOMFORT [None]
  - PSORIASIS [None]
  - VULVOVAGINAL PRURITUS [None]
  - ABDOMINAL PAIN [None]
  - RASH MACULAR [None]
  - MAMMOGRAM ABNORMAL [None]
  - CHILLS [None]
